FAERS Safety Report 24270004 (Version 1)
Quarter: 2024Q3

REPORT INFORMATION
  Report Type: Spontaneous
  Country: IT (occurrence: IT)
  Receive Date: 20240830
  Receipt Date: 20240830
  Transmission Date: 20241016
  Serious: Yes (Hospitalization, Other)
  Sender: ELI LILLY AND CO
  Company Number: IT-HIKMA PHARMACEUTICALS USA INC.-IT-H14001-24-07551

PATIENT
  Age: 73 Year
  Sex: Female

DRUGS (3)
  1. GEMCITABINE HYDROCHLORIDE [Suspect]
     Active Substance: GEMCITABINE HYDROCHLORIDE
     Indication: Ductal adenocarcinoma of pancreas
     Dosage: UNK UNK, UNKNOWN
     Route: 042
  2. PACLITAXEL [Suspect]
     Active Substance: PACLITAXEL
     Indication: Ductal adenocarcinoma of pancreas
     Dosage: UNK UNK, UNKNOWN
     Route: 042
  3. SBP-101 [Suspect]
     Active Substance: SBP-101
     Indication: Ductal adenocarcinoma of pancreas
     Dosage: UNK UNK, UNKNOWN
     Route: 058

REACTIONS (4)
  - Tremor [Not Recovered/Not Resolved]
  - Sepsis [Not Recovered/Not Resolved]
  - Pyrexia [Not Recovered/Not Resolved]
  - Chills [Not Recovered/Not Resolved]

NARRATIVE: CASE EVENT DATE: 20240703
